FAERS Safety Report 6148263-9 (Version None)
Quarter: 2009Q2

REPORT INFORMATION
  Report Type: 
  Country: None (occurrence: None)
  Receive Date: 20090403
  Receipt Date: 20090204
  Transmission Date: 20091009
  Serious: Yes (Other)
  Sender: FDA-Public Use
  Company Number: 20090033

PATIENT

DRUGS (4)
  1. DEXFERRUM [Suspect]
     Dates: start: 20081229
  2. BENEDRYL [Concomitant]
  3. DEXAMETHASONE 4MG TAB [Concomitant]
  4. ZANTAC [Concomitant]

REACTIONS (4)
  - CHEST DISCOMFORT [None]
  - DYSPNOEA [None]
  - PYREXIA [None]
  - RASH [None]
